FAERS Safety Report 8996818 (Version 5)
Quarter: 2014Q3

REPORT INFORMATION
  Report Type: Spontaneous
  Country: CA (occurrence: None)
  Receive Date: 20121220
  Receipt Date: 20140731
  Transmission Date: 20150326
  Serious: Yes (Hospitalization)
  Sender: FDA-Public Use
  Company Number: CA-010378

PATIENT
  Age: 89 Year
  Sex: Male

DRUGS (1)
  1. FIRMAGON [Suspect]
     Active Substance: DEGARELIX ACETATE
     Indication: PROSTATE CANCER
     Route: 058
     Dates: start: 20100701

REACTIONS (10)
  - Fall [None]
  - Malaise [None]
  - Hemiparesis [None]
  - Confusional state [None]
  - Cerebral haematoma [None]
  - Blood glucose increased [None]
  - Blood glucose abnormal [None]
  - Dizziness [None]
  - Headache [None]
  - Intracranial haematoma [None]

NARRATIVE: CASE EVENT DATE: 20121213
